FAERS Safety Report 11337075 (Version 4)
Quarter: 2015Q3

REPORT INFORMATION
  Report Type: Spontaneous
  Country: US (occurrence: US)
  Receive Date: 20150804
  Receipt Date: 20150924
  Transmission Date: 20151125
  Serious: Yes (Other)
  Sender: FDA-Public Use
  Company Number: US-REGENERON PHARMACEUTICALS, INC.-2015-11869

PATIENT

DRUGS (6)
  1. CLONAZEPAM. [Concomitant]
     Active Substance: CLONAZEPAM
     Indication: PRODUCT USED FOR UNKNOWN INDICATION
  2. ATENOLOL. [Concomitant]
     Active Substance: ATENOLOL
     Indication: PRODUCT USED FOR UNKNOWN INDICATION
  3. ALLOPURINOL. [Concomitant]
     Active Substance: ALLOPURINOL
     Indication: PRODUCT USED FOR UNKNOWN INDICATION
  4. EYLEA [Suspect]
     Active Substance: AFLIBERCEPT
     Indication: MACULAR DEGENERATION
     Dosage: UNK, EVERY 4 WEEKS FOR 4 MONTHS, THEN AT 5 WEEKS ONCE
     Route: 031
     Dates: start: 20150309
  5. VALSARTAN. [Concomitant]
     Active Substance: VALSARTAN
     Indication: PRODUCT USED FOR UNKNOWN INDICATION
  6. BETADINE [Suspect]
     Active Substance: POVIDONE-IODINE
     Indication: PROPHYLAXIS
     Dosage: UNK
     Route: 061
     Dates: start: 20150309

REACTIONS (6)
  - Eye swelling [Unknown]
  - Foreign body sensation in eyes [Unknown]
  - Dry age-related macular degeneration [Unknown]
  - Eye haemorrhage [Recovered/Resolved]
  - Vitreous floaters [Recovered/Resolved]
  - Eye pain [Unknown]
